FAERS Safety Report 7669143-3 (Version None)
Quarter: 2011Q3

REPORT INFORMATION
  Report Type: 
  Country: None (occurrence: None)
  Receive Date: 20110808
  Receipt Date: 20110725
  Transmission Date: 20111222
  Serious: Yes (Hospitalization)
  Sender: FDA-Public Use
  Company Number: PHHY2011FR68010

PATIENT
  Sex: Male

DRUGS (4)
  1. VOLTAREN [Suspect]
     Indication: ARTHRALGIA
     Dosage: 75 MG, BID
     Route: 048
     Dates: start: 20110227, end: 20110305
  2. TETRAZEPAM [Suspect]
     Indication: ARTHRALGIA
     Dosage: 50 MG, DAILY
     Dates: start: 20110227, end: 20110305
  3. ACETAMINOPHEN AND TRAMADOL HCL [Suspect]
     Indication: ARTHRALGIA
     Dosage: 4 DF, UNK
     Route: 048
     Dates: start: 20110227, end: 20110305
  4. SOLU-MEDROL [Suspect]
     Indication: ARTHRALGIA
     Dosage: 120 MG FOUR TIMES DAILY
     Dates: start: 20110305, end: 20110306

REACTIONS (16)
  - OEDEMA PERIPHERAL [None]
  - BLOOD IMMUNOGLOBULIN A INCREASED [None]
  - PYOMYOSITIS [None]
  - PYREXIA [None]
  - ABDOMINAL PAIN [None]
  - INFECTION [None]
  - STAPHYLOCOCCUS TEST POSITIVE [None]
  - SEPTIC SHOCK [None]
  - RENAL FAILURE [None]
  - MUSCLE ABSCESS [None]
  - PSOAS ABSCESS [None]
  - GENERAL PHYSICAL HEALTH DETERIORATION [None]
  - ABSCESS LIMB [None]
  - JAUNDICE [None]
  - THROMBOCYTOPENIA [None]
  - SYSTEMIC LUPUS ERYTHEMATOSUS [None]
